FAERS Safety Report 5193931-9 (Version None)
Quarter: 2006Q4

REPORT INFORMATION
  Report Type: 
  Country: None (occurrence: None)
  Receive Date: 20061228
  Receipt Date: 20061121
  Transmission Date: 20070319
  Serious: Yes (Death, Hospitalization, Other)
  Sender: FDA-Public Use
  Company Number: 2006SE06377

PATIENT
  Age: 61 Year
  Sex: Male
  Weight: 81 kg

DRUGS (5)
  1. CRESTOR [Suspect]
     Route: 048
     Dates: start: 20061104
  2. CRESTOR [Suspect]
     Route: 048
     Dates: start: 20061101, end: 20061113
  3. ISOSORBID 5-MONOHYDRATE [Concomitant]
     Indication: CORONARY ARTERY DISEASE
     Route: 048
  4. ASPIRIN [Concomitant]
     Indication: CORONARY ARTERY DISEASE
     Route: 048
  5. BISOPROLOL FUMARATE [Concomitant]

REACTIONS (8)
  - DECUBITUS ULCER [None]
  - ERYTHEMA [None]
  - GASTROINTESTINAL HAEMORRHAGE [None]
  - GENERAL PHYSICAL HEALTH DETERIORATION [None]
  - HAEMODIALYSIS [None]
  - INSOMNIA [None]
  - MYALGIA [None]
  - RHABDOMYOLYSIS [None]
